FAERS Safety Report 25517474 (Version 1)
Quarter: 2025Q3

REPORT INFORMATION
  Report Type: Report from Study
  Country: CN (occurrence: CN)
  Receive Date: 20250704
  Receipt Date: 20250704
  Transmission Date: 20251021
  Serious: Yes (Other)
  Sender: ROCHE
  Company Number: CN-ROCHE-10000324874

PATIENT
  Age: 24 Year
  Sex: Male

DRUGS (1)
  1. COLUMVI [Suspect]
     Active Substance: GLOFITAMAB-GXBM
     Indication: Diffuse large B-cell lymphoma
     Dosage: STRENGTH: 10 MG(10ML)/VIAL
     Route: 050
     Dates: start: 20250217

REACTIONS (4)
  - Pericardial effusion [Unknown]
  - Pain [Unknown]
  - Bedridden [Unknown]
  - Mobility decreased [Unknown]
